FAERS Safety Report 4417819-3 (Version None)
Quarter: 2004Q2

REPORT INFORMATION
  Report Type: 
  Country: None (occurrence: None)
  Receive Date: 20040624
  Receipt Date: 20030519
  Transmission Date: 20050107
  Serious: Yes (Life-Threatening, Hospitalization)
  Sender: FDA-Public Use
  Company Number: 2003UW06498

PATIENT
  Age: 79 Year
  Sex: Female
  Weight: 105 kg

DRUGS (3)
  1. SENSORCAINE [Suspect]
     Indication: NERVE BLOCK
     Dosage: 0.5 % ONCE PNEU
     Route: 053
     Dates: start: 20020605, end: 20020605
  2. ZOCOR [Concomitant]
  3. DIOVAN [Concomitant]

REACTIONS (2)
  - CARDIAC ARREST [None]
  - CONVULSION [None]
